FAERS Safety Report 8281728 (Version 2)
Quarter: 2012Q4

REPORT INFORMATION
  Report Type: 
  Country: US (occurrence: US)
  Receive Date: 20111209
  Receipt Date: 20121207
  Transmission Date: 20130627
  Serious: Yes (Other)
  Sender: FDA-Public Use
  Company Number: US-GLAXOSMITHKLINE-A0892612A

PATIENT
  Age: 42 Year
  Sex: Male
  Weight: 83.2 kg

DRUGS (1)
  1. AVANDAMET [Suspect]
     Indication: DIABETES MELLITUS
     Route: 048
     Dates: start: 20061109, end: 20061208

REACTIONS (1)
  - Cardiac failure congestive [Not Recovered/Not Resolved]
